FAERS Safety Report 8111728-4 (Version None)
Quarter: 2012Q1

REPORT INFORMATION
  Report Type: 
  Country: None (occurrence: None)
  Receive Date: 20120203
  Receipt Date: 20120125
  Transmission Date: 20120608
  Serious: Yes (Hospitalization)
  Sender: FDA-Public Use
  Company Number: US-CELGENEUS-163-21880-11113960

PATIENT
  Sex: Male
  Weight: 86 kg

DRUGS (15)
  1. REVLIMID [Suspect]
     Indication: MULTIPLE MYELOMA
     Dosage: 25 MILLIGRAM
     Route: 048
     Dates: start: 20111108, end: 20120103
  2. VELCADE [Suspect]
     Dosage: 1.4 MICROGRAM/SQ. METER
     Route: 065
     Dates: start: 20111108
  3. DEXAMETHASONE [Suspect]
     Dosage: 20 MILLIGRAM
     Route: 065
     Dates: start: 20111107
  4. DEXAMETHASONE [Suspect]
     Dosage: 20 MILLIGRAM
     Route: 065
  5. DILAUDID [Concomitant]
     Route: 065
     Dates: start: 20111001
  6. GABAPENTIN [Concomitant]
     Dosage: 300 MILLIGRAM
     Route: 065
     Dates: start: 20111123
  7. VELCADE [Suspect]
     Dosage: 1 MILLIGRAM/SQ. METER
     Route: 065
  8. COUMADIN [Concomitant]
     Route: 065
     Dates: start: 20111108
  9. COUMADIN [Concomitant]
     Route: 065
  10. ATENOLOL [Concomitant]
     Indication: HYPERTENSION
     Route: 065
  11. ACYCLOVIR [Concomitant]
     Indication: PROPHYLAXIS
     Route: 065
     Dates: start: 20111107
  12. FLOMAX [Concomitant]
     Dosage: .4 MILLIGRAM
     Route: 065
     Dates: start: 20111031
  13. REVLIMID [Suspect]
     Dosage: 25 MILLIGRAM
     Route: 048
     Dates: start: 20120101, end: 20120124
  14. OMEPRAZOLE [Concomitant]
     Route: 065
     Dates: start: 20111107
  15. FLEXERIL [Concomitant]
     Route: 065
     Dates: start: 20111107

REACTIONS (2)
  - GENERALISED OEDEMA [None]
  - PYREXIA [None]
